FAERS Safety Report 13424187 (Version 1)
Quarter: 2017Q2

REPORT INFORMATION
  Report Type: Spontaneous
  Country: BE (occurrence: BE)
  Receive Date: 20170410
  Receipt Date: 20170410
  Transmission Date: 20170830
  Serious: Yes (Death)
  Sender: FDA-Public Use
  Company Number: BE-BAYER-2017-060952

PATIENT
  Sex: Female

DRUGS (6)
  1. STIVARGA [Suspect]
     Active Substance: REGORAFENIB
     Indication: COLORECTAL CANCER METASTATIC
     Dosage: 120MG (2X40MG)
     Dates: start: 20150730, end: 20150908
  2. ZOCOR [Concomitant]
     Active Substance: SIMVASTATIN
     Dosage: 40 MG, UNK
  3. LORMETAZEPAM [Concomitant]
     Active Substance: LORMETAZEPAM
     Dosage: 2 MG, UNK
  4. CALCIUM [Concomitant]
     Active Substance: CALCIUM
     Dosage: UNK
  5. D-CURE [Concomitant]
     Dosage: UNK
  6. LITICAN [Concomitant]
     Active Substance: ALIZAPRIDE HYDROCHLORIDE
     Dosage: UNK

REACTIONS (3)
  - Liver disorder [None]
  - Colorectal cancer metastatic [Fatal]
  - Dermatitis allergic [None]

NARRATIVE: CASE EVENT DATE: 2015
